FAERS Safety Report 20861601 (Version 1)
Quarter: 2022Q2

REPORT INFORMATION
  Report Type: Spontaneous
  Country: US (occurrence: None)
  Receive Date: 20220520
  Receipt Date: 20220520
  Transmission Date: 20220720
  Serious: Yes (Other)
  Sender: FDA-Public Use
  Company Number: None

PATIENT
  Age: 58 Year
  Sex: Female
  Weight: 63 kg

DRUGS (7)
  1. ROSUVASTATIN CALCIUM [Suspect]
     Active Substance: ROSUVASTATIN CALCIUM
     Indication: Blood cholesterol increased
     Dosage: OTHER QUANTITY : 1 TABLET(S);?FREQUENCY : AT BEDTIME;?
     Route: 048
     Dates: start: 20220107, end: 20220518
  2. SYNTHROID [Concomitant]
     Active Substance: LEVOTHYROXINE SODIUM
  3. MULTIVITAMIN [Concomitant]
  4. D [Concomitant]
  5. CALCIUM [Concomitant]
     Active Substance: CALCIUM
  6. TEA [Concomitant]
     Active Substance: TEA LEAF
  7. PROTEIN BARS [Concomitant]

REACTIONS (4)
  - Muscle spasms [None]
  - Muscle spasms [None]
  - Breast enlargement [None]
  - Hyperaesthesia [None]

NARRATIVE: CASE EVENT DATE: 20220301
